FAERS Safety Report 4286090-8 (Version None)
Quarter: 2004Q1

REPORT INFORMATION
  Report Type: 
  Country: None (occurrence: None)
  Receive Date: 20040120
  Receipt Date: 20030514
  Transmission Date: 20041129
  Serious: Yes (Life-Threatening, Hospitalization)
  Sender: FDA-Public Use
  Company Number: A03200200886

PATIENT
  Age: 61 Year
  Sex: Female

DRUGS (16)
  1. PLAVIX [Suspect]
     Indication: CEREBROVASCULAR ACCIDENT
     Dosage: 75 MG QD - ORAL
     Route: 048
     Dates: start: 20020501, end: 20020614
  2. ESTROGENS CONJUGATED [Concomitant]
  3. HYDROCHLOROTHIAZIDE [Concomitant]
  4. ATENOLOL [Concomitant]
  5. BELLADONNA EXTRACT [Concomitant]
  6. POTASSIUM [Concomitant]
  7. NIACIN [Concomitant]
  8. CALCIUM [Concomitant]
  9. GARLIC [Concomitant]
  10. MULTI-VITAMIN [Concomitant]
  11. VITAMIN B-12 [Concomitant]
  12. UBIDECARENONE [Concomitant]
  13. VITAMIN C [Concomitant]
  14. ACETYLSALICYLIC ACID SRT [Concomitant]
  15. MECLIZINE [Concomitant]
  16. IBUPROFEN [Concomitant]

REACTIONS (7)
  - ANGIONEUROTIC OEDEMA [None]
  - DIARRHOEA [None]
  - DUODENAL ULCER [None]
  - GASTRITIS [None]
  - NAUSEA [None]
  - SYNCOPE VASOVAGAL [None]
  - VOMITING [None]
